FAERS Safety Report 17920099 (Version 3)
Quarter: 2020Q3

REPORT INFORMATION
  Report Type: Report from Study
  Country: DK (occurrence: DK)
  Receive Date: 20200620
  Receipt Date: 20200720
  Transmission Date: 20201105
  Serious: Yes (Other)
  Sender: FDA-Public Use
  Company Number: DK-ACCORD-186227

PATIENT

DRUGS (8)
  1. RISEDRONATE SODIUM/RISEDRONIC ACID [Suspect]
     Active Substance: RISEDRONATE SODIUM
     Indication: OSTEOPOROSIS
     Route: 048
  2. IBANDRONIC ACID. [Suspect]
     Active Substance: IBANDRONIC ACID
     Indication: OSTEOPOROSIS
     Route: 048
  3. RALOXIFENE/RALOXIFENE HYDROCHLORIDE [Suspect]
     Active Substance: RALOXIFENE
     Indication: OSTEOPOROSIS
     Route: 048
  4. ZOLEDRONIC ACID [Suspect]
     Active Substance: ZOLEDRONIC ACID
     Indication: OSTEOPOROSIS
     Route: 048
  5. ALENDRONATE SODIUM/ALENDRONIC ACID [Suspect]
     Active Substance: ALENDRONATE SODIUM
     Indication: OSTEOPOROSIS
     Route: 048
  6. CLODRONIC ACID [Suspect]
     Active Substance: CLODRONIC ACID
     Indication: OSTEOPOROSIS
     Route: 048
  7. ETIDRONATE DISODIUM/ETIDRONIC ACID [Suspect]
     Active Substance: ETIDRONIC ACID
     Indication: OSTEOPOROSIS
     Route: 048
  8. RANELIC ACID [Suspect]
     Active Substance: RANELIC ACID
     Indication: OSTEOPOROSIS
     Route: 048

REACTIONS (11)
  - Cardiac failure [Unknown]
  - Fracture nonunion [Unknown]
  - Arrhythmia [Unknown]
  - Fracture [Unknown]
  - Ischaemic stroke [Unknown]
  - Femur fracture [Unknown]
  - Osteomyelitis [Unknown]
  - Hip fracture [Unknown]
  - Atrial fibrillation [Unknown]
  - Myocardial infarction [Unknown]
  - Osteonecrosis of jaw [Unknown]
